FAERS Safety Report 16734073 (Version 1)
Quarter: 2019Q3

REPORT INFORMATION
  Report Type: Spontaneous
  Country: US (occurrence: US)
  Receive Date: 20190708
  Receipt Date: 20190708
  Transmission Date: 20191005
  Serious: No
  Sender: FDA-Public Use
  Company Number: None

PATIENT
  Age: 79 Year
  Sex: Female

DRUGS (1)
  1. CAPECITABINE 500MG [Suspect]
     Active Substance: CAPECITABINE
     Indication: COLON CANCER
     Dosage: 1000MG BID, 7 DAYS ON, 7 OFF PO
     Route: 048
     Dates: start: 20180523

REACTIONS (1)
  - Chest discomfort [None]

NARRATIVE: CASE EVENT DATE: 201905
